FAERS Safety Report 21839280 (Version 5)
Quarter: 2023Q2

REPORT INFORMATION
  Report Type: Spontaneous
  Country: FR (occurrence: FR)
  Receive Date: 20230109
  Receipt Date: 20230413
  Transmission Date: 20230721
  Serious: Yes (Death, Other)
  Sender: FDA-Public Use
  Company Number: None

PATIENT
  Age: 76 Year
  Sex: Male
  Weight: 60 kg

DRUGS (19)
  1. CHOLECALCIFEROL [Suspect]
     Active Substance: CHOLECALCIFEROL
     Indication: Vitamin D deficiency
     Dosage: 1 DOSAGE FORM, Q2W (CYCLICAL)
     Route: 048
  2. CHOLECALCIFEROL [Suspect]
     Active Substance: CHOLECALCIFEROL
     Dosage: 1 DOSAGE FORM, QD
     Route: 048
     Dates: end: 20221029
  3. INSPRA [Suspect]
     Active Substance: EPLERENONE
     Indication: Hypertension
     Dosage: 1 DOSAGE FORM, QD
     Route: 048
     Dates: end: 20221029
  4. LAMALINE (ACETAMINOPHEN\CAFFEINE\OPIUM) [Suspect]
     Active Substance: ACETAMINOPHEN\CAFFEINE\OPIUM
     Indication: Pain
     Dosage: UNK
     Route: 048
     Dates: start: 20221026, end: 20221028
  5. TAHOR [Suspect]
     Active Substance: ATORVASTATIN CALCIUM
     Indication: Myocardial ischaemia
     Dosage: 1 DOSAGE FORM, QD
     Route: 048
     Dates: end: 20221029
  6. FOLIC ACID [Suspect]
     Active Substance: FOLIC ACID
     Indication: Anaemia folate deficiency
     Dosage: 3 DOSAGE FORM, QD
     Route: 048
     Dates: end: 20221029
  7. RAMIPRIL [Suspect]
     Active Substance: RAMIPRIL
     Indication: Myocardial ischaemia
     Dosage: 1 DOSAGE FORM, QD
     Route: 048
     Dates: end: 20221029
  8. BISOPROLOL [Suspect]
     Active Substance: BISOPROLOL
     Indication: Myocardial ischaemia
     Dosage: 1 DOSAGE FORM, QD
     Route: 048
     Dates: end: 20221029
  9. MONTELUKAST [Suspect]
     Active Substance: MONTELUKAST SODIUM
     Indication: Hypertension
     Dosage: 1 DOSAGE FORM
     Route: 048
  10. CLOPIDOGREL BISULFATE [Suspect]
     Active Substance: CLOPIDOGREL BISULFATE
     Indication: Myocardial ischaemia
     Dosage: 1 DOSAGE FORM, QD
     Route: 048
     Dates: end: 20221029
  11. ACETAMINOPHEN [Suspect]
     Active Substance: ACETAMINOPHEN
     Indication: Pain
     Dosage: 4 DOSAGE FORM, QD
     Route: 048
     Dates: start: 20221005, end: 20221028
  12. KETOPROFEN [Suspect]
     Active Substance: KETOPROFEN
     Indication: Pain
     Dosage: 4 DOSAGE FORM, QD
     Route: 048
     Dates: start: 20221026, end: 20221028
  13. THIOCOLCHICOSIDE [Suspect]
     Active Substance: THIOCOLCHICOSIDE
     Indication: Arthralgia
     Dosage: 2 DOSAGE FORM, QD
     Route: 048
     Dates: start: 20221026, end: 20221028
  14. ASPIRIN\CLOPIDOGREL BISULFATE [Suspect]
     Active Substance: ASPIRIN\CLOPIDOGREL BISULFATE
     Indication: Myocardial ischaemia
     Dosage: 1 DOSAGE FORM, QD
     Route: 048
     Dates: end: 20221029
  15. DAPAGLIFLOZIN [Suspect]
     Active Substance: DAPAGLIFLOZIN
     Indication: Diabetes mellitus
     Dosage: 1 DOSAGE FORM, QD
     Route: 048
     Dates: end: 20221029
  16. ALLOPURINOL [Suspect]
     Active Substance: ALLOPURINOL
     Indication: Product used for unknown indication
     Dosage: 1 DOSAGE FORM, QD
     Route: 048
     Dates: end: 20221029
  17. PANTOPRAZOLE [Concomitant]
     Active Substance: PANTOPRAZOLE
     Dosage: UNK
     Route: 065
  18. FUROSEMIDE [Concomitant]
     Active Substance: FUROSEMIDE
     Dosage: UNK
     Route: 065
  19. Panto [Concomitant]
     Dosage: UNK
     Route: 065

REACTIONS (2)
  - Gastrointestinal haemorrhage [Fatal]
  - Cardiogenic shock [Fatal]

NARRATIVE: CASE EVENT DATE: 20221029
